FAERS Safety Report 8099511-X (Version None)
Quarter: 2012Q1

REPORT INFORMATION
  Report Type: 
  Country: None (occurrence: None)
  Receive Date: 20120129
  Receipt Date: 20110915
  Transmission Date: 20120608
  Serious: No
  Sender: FDA-Public Use
  Company Number: US-ABBOTT-11P-163-0855244-00

PATIENT
  Age: 16 Year
  Sex: Female

DRUGS (5)
  1. SPIRONOLACTONE [Concomitant]
     Indication: POLYCYSTIC OVARIES
  2. SULFASALAZINE [Concomitant]
     Indication: JUVENILE ARTHRITIS
  3. HUMIRA [Suspect]
     Indication: JUVENILE ARTHRITIS
     Dates: start: 20110808
  4. METFORMIN HCL [Concomitant]
     Indication: POLYCYSTIC OVARIES
  5. ETODOLAC [Concomitant]
     Indication: JUVENILE ARTHRITIS

REACTIONS (1)
  - URINE COLOUR ABNORMAL [None]
